FAERS Safety Report 22250129 (Version 1)
Quarter: 2023Q2

REPORT INFORMATION
  Report Type: Spontaneous
  Country: US (occurrence: None)
  Receive Date: 20230422
  Receipt Date: 20230422
  Transmission Date: 20230722
  Serious: No
  Sender: FDA-Public Use
  Company Number: None

PATIENT
  Sex: Male
  Weight: 77.11 kg

DRUGS (6)
  1. ABIRATERONE ACETATE [Suspect]
     Active Substance: ABIRATERONE ACETATE
     Indication: Prostate cancer
     Dosage: FREQUENCY : DAILY;?
     Route: 048
     Dates: start: 202112
  2. IBUPROFEN [Concomitant]
  3. LEVOTHYROXINE [Concomitant]
  4. Pantroprazole [Concomitant]
  5. PREDNISONE [Concomitant]
  6. SIMVASTATIN [Concomitant]

REACTIONS (2)
  - Gastric disorder [None]
  - Malignant neoplasm progression [None]
